FAERS Safety Report 9548137 (Version 2)
Quarter: 2013Q3

REPORT INFORMATION
  Report Type: Spontaneous
  Country: US (occurrence: US)
  Receive Date: 20130924
  Receipt Date: 20130924
  Transmission Date: 20140515
  Serious: Yes (Other)
  Sender: FDA-Public Use
  Company Number: US-MYLANLABS-2013S1020851

PATIENT
  Age: 67 Year
  Sex: Female
  Weight: 68.04 kg

DRUGS (9)
  1. LAMOTRIGINE TABLETS [Suspect]
     Indication: DEPRESSION
     Route: 048
     Dates: start: 201309
  2. LAMOTRIGINE TABLETS [Suspect]
     Indication: OFF LABEL USE
     Route: 048
     Dates: start: 201309
  3. LAMOTRIGINE TABLETS [Suspect]
     Indication: DEPRESSION
     Route: 048
     Dates: end: 201308
  4. LAMOTRIGINE TABLETS [Suspect]
     Indication: OFF LABEL USE
     Route: 048
     Dates: end: 201308
  5. ASA [Concomitant]
  6. ATORVASTATIN [Concomitant]
     Indication: BLOOD CHOLESTEROL INCREASED
  7. MULTIVITAMIN [Concomitant]
  8. METFORMIN [Concomitant]
     Indication: DIABETES MELLITUS
  9. INSULIN [Concomitant]
     Indication: DIABETES MELLITUS

REACTIONS (3)
  - Rash generalised [Recovered/Resolved]
  - Feeling hot [Recovered/Resolved]
  - Pruritus generalised [Recovered/Resolved]
